FAERS Safety Report 23866141 (Version 1)
Quarter: 2024Q2

REPORT INFORMATION
  Report Type: Spontaneous
  Country: CA (occurrence: None)
  Receive Date: 20240517
  Receipt Date: 20240517
  Transmission Date: 20240715
  Serious: Yes (Hospitalization)
  Sender: FDA-Public Use
  Company Number: 2024A112574

PATIENT
  Age: 84 Year
  Sex: Female
  Weight: 63 kg

DRUGS (8)
  1. CALQUENCE [Suspect]
     Active Substance: ACALABRUTINIB
     Indication: Chronic lymphocytic leukaemia
     Route: 048
  2. ALENDRONATE SODIUM [Concomitant]
     Active Substance: ALENDRONATE SODIUM
  3. APIXABAN [Concomitant]
     Active Substance: APIXABAN
  4. CALCIUM\VITAMIN D [Concomitant]
     Active Substance: CALCIUM\VITAMIN D
  5. CANDESARTAN [Concomitant]
     Active Substance: CANDESARTAN
  6. METOPROLOL [Concomitant]
     Active Substance: METOPROLOL
  7. PROLIA [Concomitant]
     Active Substance: DENOSUMAB
     Route: 058
  8. SYMBICORT [Concomitant]
     Active Substance: BUDESONIDE\FORMOTEROL FUMARATE DIHYDRATE

REACTIONS (6)
  - Haemorrhage [Not Recovered/Not Resolved]
  - Pain [Not Recovered/Not Resolved]
  - Squamous cell carcinoma of the vulva [Not Recovered/Not Resolved]
  - Ulcer [Not Recovered/Not Resolved]
  - Vulval disorder [Not Recovered/Not Resolved]
  - Wound complication [Not Recovered/Not Resolved]
